APPROVED DRUG PRODUCT: COLESTIPOL HYDROCHLORIDE
Active Ingredient: COLESTIPOL HYDROCHLORIDE
Strength: 1GM
Dosage Form/Route: TABLET;ORAL
Application: A220012 | Product #001 | TE Code: AB
Applicant: PHARMOBEDIENT CONSULTING LLC
Approved: Sep 15, 2025 | RLD: No | RS: No | Type: RX